FAERS Safety Report 5302690-8 (Version None)
Quarter: 2007Q2

REPORT INFORMATION
  Report Type: 
  Country: None (occurrence: None)
  Receive Date: 20070419
  Receipt Date: 20070410
  Transmission Date: 20071010
  Serious: Yes (Other)
  Sender: FDA-Public Use
  Company Number: US-PFIZER INC-2007018127

PATIENT
  Sex: Female

DRUGS (11)
  1. LYRICA [Suspect]
     Indication: CERVICOGENIC HEADACHE
     Dates: start: 20070105, end: 20070109
  2. LIPITOR [Concomitant]
  3. GLUCOSAMINE W/CHONDROITIN SULFATES [Concomitant]
  4. ASCORBIC ACID [Concomitant]
  5. VICODIN [Concomitant]
     Indication: CERVICOGENIC HEADACHE
  6. ULTRAM [Concomitant]
     Indication: CERVICOGENIC HEADACHE
  7. PROTONIX [Concomitant]
  8. LIBRAX [Concomitant]
  9. PEPCID [Concomitant]
  10. VITAMIN CAP [Concomitant]
  11. CALCIUM WITH VITAMIN D [Concomitant]

REACTIONS (13)
  - BALANCE DISORDER [None]
  - CHEST PAIN [None]
  - CONFUSIONAL STATE [None]
  - DISORIENTATION [None]
  - DIZZINESS [None]
  - DRUG INEFFECTIVE [None]
  - DRUG INEFFECTIVE FOR UNAPPROVED INDICATION [None]
  - FEAR OF FALLING [None]
  - FEELING ABNORMAL [None]
  - HEADACHE [None]
  - SEDATION [None]
  - SOMNOLENCE [None]
  - THINKING ABNORMAL [None]
